FAERS Safety Report 21108585 (Version 1)
Quarter: 2022Q3

REPORT INFORMATION
  Report Type: Report from Study
  Country: US (occurrence: US)
  Receive Date: 20220721
  Receipt Date: 20220721
  Transmission Date: 20221027
  Serious: Yes (Death, Hospitalization, Other)
  Sender: FDA-Public Use
  Company Number: US-BRISTOL-MYERS SQUIBB COMPANY-2022-075031

PATIENT
  Age: 71 Year
  Sex: Male
  Weight: 151.2 kg

DRUGS (3)
  1. NIVOLUMAB [Suspect]
     Active Substance: NIVOLUMAB
     Indication: Metastatic renal cell carcinoma
     Dosage: INDUCTION THERAPY, CYCLE = 21 DAYS (MAX 4 CYCLES)?NIVOLUMAB (BMS-936558, MDX-1106): 3 MG/KG IV ON DA
     Route: 042
     Dates: start: 20220427, end: 20220427
  2. IPILIMUMAB [Suspect]
     Active Substance: IPILIMUMAB
     Indication: Metastatic renal cell carcinoma
     Dosage: INDUCTION THERAPY?CYCLE = 21 DAYS (MAX 4 CYCLES)?IPILIMUMAB (BMS-734016; MDX-010 TRANSFECTOMA-DERIVE
     Route: 042
     Dates: start: 20220427, end: 20220427
  3. ABATACEPT [Concomitant]
     Active Substance: ABATACEPT
     Indication: Product used for unknown indication
     Route: 065

REACTIONS (4)
  - Myocarditis [Unknown]
  - Dyspnoea [Unknown]
  - Cardiac arrest [Fatal]
  - Ventricular tachycardia [Unknown]

NARRATIVE: CASE EVENT DATE: 20220511
